FAERS Safety Report 13509241 (Version 1)
Quarter: 2017Q2

REPORT INFORMATION
  Report Type: Report from Study
  Country: US (occurrence: US)
  Receive Date: 20170503
  Receipt Date: 20170503
  Transmission Date: 20170830
  Serious: Yes (Death, Life-Threatening, Hospitalization, Other)
  Sender: FDA-Public Use
  Company Number: US-AMGEN-USACT2017064602

PATIENT
  Age: 17 Year
  Sex: Male
  Weight: 54 kg

DRUGS (10)
  1. KYTRIL [Suspect]
     Active Substance: GRANISETRON HYDROCHLORIDE
     Indication: PRODUCT USED FOR UNKNOWN INDICATION
     Dosage: UNK
     Route: 065
  2. MERCAPTOPURINE. [Concomitant]
     Active Substance: MERCAPTOPURINE
     Dosage: 20 MG/M2, UNK
     Route: 048
  3. BLINATUMOMAB [Suspect]
     Active Substance: BLINATUMOMAB
     Dosage: UNK UNK, CONTINUING
     Route: 042
     Dates: start: 20170119, end: 20170203
  4. MICAFUNGIN [Suspect]
     Active Substance: MICAFUNGIN
     Indication: PRODUCT USED FOR UNKNOWN INDICATION
     Dosage: UNK
     Route: 065
  5. METHOTREXATE. [Concomitant]
     Active Substance: METHOTREXATE
     Dosage: 8-15 MG (AGE-BASED DOSING)
     Route: 048
  6. BLINATUMOMAB [Suspect]
     Active Substance: BLINATUMOMAB
     Indication: B PRECURSOR TYPE ACUTE LEUKAEMIA
     Dosage: 5 MUG/M2, CONTINUING
     Route: 042
     Dates: start: 20170112
  7. VINCRISTINE [Concomitant]
     Active Substance: VINCRISTINE
     Dosage: 1.5 MG/M2, (MAX. DOSE: 2 MG
     Route: 042
  8. NOREPINEPHRINE. [Concomitant]
     Active Substance: NOREPINEPHRINE
     Dosage: UNK GTT, UNK
  9. ZOMETA [Suspect]
     Active Substance: ZOLEDRONIC ACID
     Indication: PRODUCT USED FOR UNKNOWN INDICATION
     Dosage: UNK
     Route: 065
  10. LASIX [Suspect]
     Active Substance: FUROSEMIDE
     Indication: PRODUCT USED FOR UNKNOWN INDICATION
     Dosage: UNK
     Route: 065

REACTIONS (26)
  - Electrocardiogram QT prolonged [Recovering/Resolving]
  - Hallucination [Recovered/Resolved]
  - Pleural effusion [Recovered/Resolved]
  - Hypocalcaemia [Recovered/Resolved]
  - Sinus tachycardia [Unknown]
  - Tumour lysis syndrome [Recovered/Resolved]
  - Cytokine release syndrome [Recovered/Resolved]
  - Pancreatitis [Not Recovered/Not Resolved]
  - Abdominal distension [Unknown]
  - Pulmonary oedema [Recovered/Resolved]
  - Neoplasm [Fatal]
  - Hyperglycaemia [Recovered/Resolved]
  - Aspartate aminotransferase increased [Unknown]
  - Diarrhoea [Unknown]
  - Left ventricular dysfunction [Recovering/Resolving]
  - Hypokalaemia [Recovered/Resolved]
  - Hypercalcaemia [Recovered/Resolved]
  - Epistaxis [Unknown]
  - Hypophosphataemia [Recovered/Resolved]
  - Febrile neutropenia [Unknown]
  - Pyrexia [Unknown]
  - Alanine aminotransferase increased [Recovered/Resolved]
  - Nausea [Unknown]
  - Lipase increased [Unknown]
  - Hyperuricaemia [Recovered/Resolved]
  - Abdominal pain [Unknown]

NARRATIVE: CASE EVENT DATE: 2017
